FAERS Safety Report 5485640-3 (Version None)
Quarter: 2007Q4

REPORT INFORMATION
  Report Type: 
  Country: None (occurrence: None)
  Receive Date: 20071011
  Receipt Date: 20070927
  Transmission Date: 20080405
  Serious: Yes (Death)
  Sender: FDA-Public Use
  Company Number: 070924-0000946

PATIENT
  Age: 10 Month

DRUGS (2)
  1. DACTINOMYCIN [Suspect]
     Indication: NEPHROBLASTOMA
  2. VINCRISTINE [Suspect]
     Indication: NEPHROBLASTOMA

REACTIONS (1)
  - MECHANICAL ILEUS [None]
